FAERS Safety Report 12072471 (Version 1)
Quarter: 2016Q1

REPORT INFORMATION
  Report Type: Spontaneous
  Country: US (occurrence: US)
  Receive Date: 20160212
  Receipt Date: 20160212
  Transmission Date: 20160526
  Serious: No
  Sender: FDA-Public Use
  Company Number: US-ENDO PHARMACEUTICALS INC.-2015-004534

PATIENT
  Age: 64 Year
  Sex: Male
  Weight: 77.18 kg

DRUGS (2)
  1. XIAFLEX [Suspect]
     Active Substance: COLLAGENASE CLOSTRIDIUM HISTOLYTICUM
     Indication: PEYRONIE^S DISEASE
     Route: 065
     Dates: start: 20151123, end: 20151123
  2. XIAFLEX [Suspect]
     Active Substance: COLLAGENASE CLOSTRIDIUM HISTOLYTICUM
     Route: 065
     Dates: start: 20151120, end: 20151120

REACTIONS (4)
  - Wrong technique in product usage process [Unknown]
  - Injection site pain [Recovered/Resolved]
  - Penile haematoma [Recovered/Resolved]
  - Penile contusion [Unknown]

NARRATIVE: CASE EVENT DATE: 20151120
